FAERS Safety Report 4963232-X (Version None)
Quarter: 2006Q2

REPORT INFORMATION
  Report Type: 
  Country: None (occurrence: None)
  Receive Date: 20060405
  Receipt Date: 20060330
  Transmission Date: 20061013
  Serious: Yes (Hospitalization, Other)
  Sender: FDA-Public Use
  Company Number: GB-BRISTOL-MYERS SQUIBB COMPANY-13336391

PATIENT
  Age: 20 Year
  Sex: Male
  Weight: 63 kg

DRUGS (3)
  1. CISPLATIN [Suspect]
     Indication: BONE SARCOMA
  2. DOXORUBICIN HCL [Suspect]
     Indication: BONE SARCOMA
  3. METHOTREXATE [Suspect]
     Indication: BONE SARCOMA

REACTIONS (3)
  - CLOSTRIDIAL INFECTION [None]
  - EJECTION FRACTION DECREASED [None]
  - NEUTROPENIC SEPSIS [None]
